FAERS Safety Report 12992607 (Version 1)
Quarter: 2016Q4

REPORT INFORMATION
  Report Type: Spontaneous
  Country: US (occurrence: US)
  Receive Date: 20161202
  Receipt Date: 20161202
  Transmission Date: 20170207
  Serious: No
  Sender: FDA-Public Use
  Company Number: US-AUROBINDO-AUR-APU-2016-02919

PATIENT
  Sex: Female

DRUGS (1)
  1. RISPERIDONE TABLET [Suspect]
     Active Substance: RISPERIDONE
     Route: 048

REACTIONS (1)
  - Blood prolactin increased [Unknown]
